FAERS Safety Report 19021129 (Version 2)
Quarter: 2021Q2

REPORT INFORMATION
  Report Type: Report from Study
  Country: IT (occurrence: IT)
  Receive Date: 20210317
  Receipt Date: 20210415
  Transmission Date: 20210717
  Serious: Yes (Death)
  Sender: FDA-Public Use
  Company Number: IT-TEVA-2021-IT-1889312

PATIENT
  Age: 79 Year
  Sex: Male

DRUGS (11)
  1. SOLOSA 3 MG, COMPRESSE [Interacting]
     Active Substance: GLIMEPIRIDE
     Indication: TYPE 2 DIABETES MELLITUS
     Dosage: 1 DF
     Route: 048
  2. TOTALIP 10 MG COMPRESSE RIVESTITE CON FILM [Concomitant]
     Indication: HYPERCHOLESTEROLAEMIA
     Dosage: 1 DF
     Route: 048
  3. TRIATEC  5 MG COMPRESSE [Concomitant]
     Active Substance: RAMIPRIL
     Indication: HYPERTENSION
     Dosage: 1 DF
     Route: 048
  4. BISOPROLOL HEMIFUMARATE [Concomitant]
     Active Substance: BISOPROLOL FUMARATE
     Indication: CARDIAC FAILURE
     Dosage: 1 DF
     Route: 048
  5. AMLODIPINE [Concomitant]
     Active Substance: AMLODIPINE BESYLATE
     Indication: HYPERTENSION
     Dosage: 1 DF
     Route: 048
  6. AMIODARONE [Concomitant]
     Active Substance: AMIODARONE
     Indication: ATRIAL FIBRILLATION
     Dosage: 1 DF
     Route: 048
  7. CARDURA [Concomitant]
     Active Substance: DOXAZOSIN MESYLATE
     Indication: ESSENTIAL HYPERTENSION
     Dosage: 1 DF
     Route: 048
  8. METFORMIN [Suspect]
     Active Substance: METFORMIN HYDROCHLORIDE
     Indication: TYPE 2 DIABETES MELLITUS
     Dosage: 1.7 GRAM
     Route: 048
  9. PARIET 10 MG COMPRESSE GASTRORESISTENTI [Concomitant]
     Indication: GASTRODUODENAL ULCER
     Dosage: 1 DF
     Route: 048
  10. OLMESARTAN MEDOXOMIL. [Concomitant]
     Active Substance: OLMESARTAN MEDOXOMIL
     Indication: HYPERTENSION
     Dosage: 1 DF
     Route: 048
  11. PRADAXA [Concomitant]
     Active Substance: DABIGATRAN ETEXILATE MESYLATE
     Indication: CARDIAC FIBRILLATION
     Dosage: 2 DF
     Route: 048

REACTIONS (4)
  - Hemiparesis [Fatal]
  - Hypoglycaemia [Fatal]
  - Drug interaction [Unknown]
  - Syncope [Fatal]

NARRATIVE: CASE EVENT DATE: 20210119
